FAERS Safety Report 9899980 (Version 1)
Quarter: 2014Q1

REPORT INFORMATION
  Report Type: Not Available
  Country: US (occurrence: US)
  Receive Date: 20140214
  Receipt Date: 20140214
  Transmission Date: 20141002
  Serious: No
  Sender: FDA-Public Use
  Company Number: US-VIVUS-2013V1000887

PATIENT
  Age: 27 Year
  Sex: Female
  Weight: 130.3 kg

DRUGS (3)
  1. QSYMIA [Suspect]
     Indication: WEIGHT DECREASED
     Route: 048
     Dates: start: 201311
  2. SERTRALINE [Concomitant]
     Indication: ANXIETY
     Dosage: STARTED AROUND 3-4 MONTHS AGO
     Route: 048
  3. VITAMIN D [Concomitant]
     Indication: SUPPLEMENTATION THERAPY
     Dosage: STARTED AROUND 9 MONTHS AGO
     Route: 048

REACTIONS (1)
  - Menstruation delayed [Not Recovered/Not Resolved]
